FAERS Safety Report 4955888-2 (Version None)
Quarter: 2006Q1

REPORT INFORMATION
  Report Type: 
  Country: None (occurrence: None)
  Receive Date: 20060327
  Receipt Date: 20060327
  Transmission Date: 20060701
  Serious: Yes (Other)
  Sender: FDA-Public Use
  Company Number: None

PATIENT
  Age: 12 Year
  Sex: Female
  Weight: 99 kg

DRUGS (2)
  1. ABILIFY [Suspect]
     Dosage: SEE ^DESCRIBE EVENT^
  2. ABILIFY [Suspect]

REACTIONS (2)
  - EXTRAPYRAMIDAL DISORDER [None]
  - NECK PAIN [None]
